FAERS Safety Report 24430737 (Version 2)
Quarter: 2025Q1

REPORT INFORMATION
  Report Type: Spontaneous
  Country: US (occurrence: US)
  Receive Date: 20241013
  Receipt Date: 20250210
  Transmission Date: 20250409
  Serious: No
  Sender: SANOFI AVENTIS
  Company Number: US-SA-2024SA292932

PATIENT
  Age: 20 Year
  Sex: Male

DRUGS (2)
  1. DUPIXENT [Suspect]
     Active Substance: DUPILUMAB
     Indication: Eosinophilic oesophagitis
     Dosage: 300 MG, QW
     Route: 058
  2. DUPIXENT [Suspect]
     Active Substance: DUPILUMAB
     Dosage: 300 MG, QOW
     Route: 058

REACTIONS (8)
  - Fatigue [Unknown]
  - Dry eye [Unknown]
  - Injection site reaction [Unknown]
  - Dysphagia [Unknown]
  - Arthropathy [Unknown]
  - Injection site pain [Unknown]
  - Drug ineffective [Unknown]
  - Inappropriate schedule of product administration [Unknown]
